FAERS Safety Report 7683858-2 (Version None)
Quarter: 2011Q3

REPORT INFORMATION
  Report Type: 
  Country: None (occurrence: None)
  Receive Date: 20110815
  Receipt Date: 20110804
  Transmission Date: 20111222
  Serious: Yes (Other)
  Sender: FDA-Public Use
  Company Number: CA-JNJFOC-20110402624

PATIENT
  Sex: Female
  Weight: 60.1 kg

DRUGS (8)
  1. MULTI-VITAMINS [Concomitant]
  2. RISPERIDONE [Concomitant]
     Indication: PRODUCT USED FOR UNKNOWN INDICATION
     Route: 065
  3. OMEPRAZOLE [Concomitant]
     Indication: PRODUCT USED FOR UNKNOWN INDICATION
     Route: 065
  4. TRAZOREL [Concomitant]
     Indication: PRODUCT USED FOR UNKNOWN INDICATION
     Route: 065
  5. REMICADE [Suspect]
     Indication: CROHN'S DISEASE
     Dosage: 32 INFUSIONS
     Route: 042
     Dates: start: 20110404
  6. PAROXETINE HCL [Concomitant]
     Indication: PRODUCT USED FOR UNKNOWN INDICATION
     Route: 065
  7. REMICADE [Suspect]
     Route: 042
     Dates: start: 20090901
  8. CITRUCEL [Concomitant]
     Indication: PRODUCT USED FOR UNKNOWN INDICATION
     Route: 065

REACTIONS (5)
  - DECREASED APPETITE [None]
  - DIARRHOEA [None]
  - CYSTITIS [None]
  - WEIGHT DECREASED [None]
  - DEVICE OCCLUSION [None]
